FAERS Safety Report 25864586 (Version 1)
Quarter: 2025Q3

REPORT INFORMATION
  Report Type: Spontaneous
  Country: EU (occurrence: EU)
  Receive Date: 20250930
  Receipt Date: 20250930
  Transmission Date: 20251020
  Serious: Yes (Hospitalization)
  Sender: PFIZER
  Company Number: None

PATIENT
  Age: 87 Year
  Sex: Male

DRUGS (1)
  1. METHOTREXATE [Suspect]
     Active Substance: METHOTREXATE
     Dosage: 6 DF, 1X/DAY(INSTEAD OF 15MG/ WEEK FOR 7 YEARS ONGOING).

REACTIONS (4)
  - Erythema [Unknown]
  - Mouth injury [Unknown]
  - Overdose [Unknown]
  - Irritability [Unknown]
